FAERS Safety Report 7323438-1 (Version None)
Quarter: 2011Q1

REPORT INFORMATION
  Report Type: 
  Country: None (occurrence: None)
  Receive Date: 20110201
  Receipt Date: 20101029
  Transmission Date: 20110831
  Serious: Yes (Other)
  Sender: FDA-Public Use
  Company Number: AMAG201000393

PATIENT
  Age: 75 Year
  Sex: Male
  Weight: 126.1 kg

DRUGS (17)
  1. FERAHEME [Suspect]
     Indication: IRON DEFICIENCY ANAEMIA
     Dosage: 510 MG, SINGLE, INTRAVENOUS, 510 MG IV, SINGLE
     Route: 042
     Dates: start: 20101028, end: 20101028
  2. FERAHEME [Suspect]
     Indication: IRON DEFICIENCY ANAEMIA
     Dosage: 510 MG, SINGLE, INTRAVENOUS, 510 MG IV, SINGLE
     Route: 042
     Dates: start: 20101101, end: 20101101
  3. LASIX [Concomitant]
  4. ASPIRIN [Concomitant]
  5. NITROQUICK (GLYCERYL TRINITRATE) [Concomitant]
  6. METFORMIN HCL [Concomitant]
  7. MULTIVITAMIN [Concomitant]
  8. PROSCAR [Concomitant]
  9. ALDACTONE (POTASSIUM CANRENOATE) [Concomitant]
  10. HUMULIN N [Concomitant]
  11. PLAVIX [Concomitant]
  12. SYNTHROID [Concomitant]
  13. LISINOPRIL (LISINOPRIL DIHYDRATE) [Concomitant]
  14. PRILOSEC (OMEPRAZOLE) [Concomitant]
  15. ROCALTROL [Concomitant]
  16. SIMVASTATIN [Concomitant]
  17. ALLOPURINOL [Concomitant]

REACTIONS (4)
  - BLOOD PRESSURE DIASTOLIC DECREASED [None]
  - RASH [None]
  - BLOOD PRESSURE SYSTOLIC INCREASED [None]
  - URTICARIA [None]
